FAERS Safety Report 19733028 (Version 1)
Quarter: 2021Q3

REPORT INFORMATION
  Report Type: Spontaneous
  Country: US (occurrence: US)
  Receive Date: 20210822
  Receipt Date: 20210822
  Transmission Date: 20211014
  Serious: Yes (Other)
  Sender: FDA-Public Use
  Company Number: None

PATIENT
  Age: 29 Year
  Sex: Female
  Weight: 148.8 kg

DRUGS (1)
  1. REGEN?COV [Suspect]
     Active Substance: CASIRIVIMAB\IMDEVIMAB
     Indication: INFUSION RELATED REACTION
     Dosage: ?          OTHER FREQUENCY:ONCE;?
     Route: 042

REACTIONS (7)
  - Hot flush [None]
  - Erythema [None]
  - Heart rate increased [None]
  - Blood pressure increased [None]
  - Abdominal pain [None]
  - Dyspnoea [None]
  - Infusion related reaction [None]

NARRATIVE: CASE EVENT DATE: 20210822
